FAERS Safety Report 10382252 (Version 2)
Quarter: 2014Q3

REPORT INFORMATION
  Report Type: Report from Study
  Country: JP (occurrence: JP)
  Receive Date: 20140813
  Receipt Date: 20140820
  Transmission Date: 20150326
  Serious: Yes (Hospitalization)
  Sender: FDA-Public Use
  Company Number: JP-SA-2014SA106345

PATIENT
  Age: 78 Year
  Sex: Female
  Weight: 49 kg

DRUGS (20)
  1. PROMAC /JPN/ [Concomitant]
     Dosage: GRANULE
     Dates: start: 20110419
  2. ELPLAT [Suspect]
     Active Substance: OXALIPLATIN
     Indication: GASTRIC CANCER
     Route: 041
     Dates: start: 20101214
  3. SELTOUCH [Concomitant]
     Active Substance: FELBINAC
     Dosage: TAPE
     Dates: start: 20101214
  4. HIRUDOID [Concomitant]
     Active Substance: GLYCOSAMINOGLYCANS
     Dates: start: 20130911
  5. ELPLAT [Suspect]
     Active Substance: OXALIPLATIN
     Indication: GASTRIC CANCER
     Route: 041
     Dates: start: 20140627, end: 20140627
  6. TS-1 [Suspect]
     Active Substance: GIMERACIL\OTERACIL POTASSIUM\TEGAFUR
     Indication: GASTRIC CANCER
     Route: 048
     Dates: start: 20140627, end: 20140711
  7. HACHIAZULE [Concomitant]
     Dosage: MOUTHWASH
     Dates: start: 20120717
  8. XYLOCAINE [Concomitant]
     Active Substance: LIDOCAINE HYDROCHLORIDE
     Dosage: MOUTHWASH
     Dates: start: 20120717
  9. RINDERON V [Concomitant]
     Active Substance: BETAMETHASONE VALERATE
     Dates: start: 20131224
  10. HYALEIN [Concomitant]
     Active Substance: HYALURONATE SODIUM
     Dates: start: 20110308
  11. HACHIAZULE [Concomitant]
     Dosage: MOUTHWASH
     Dates: start: 20110712
  12. CRAVIT [Concomitant]
     Active Substance: LEVOFLOXACIN
     Dates: start: 20140723
  13. GLIMEPIRIDE. [Concomitant]
     Active Substance: GLIMEPIRIDE
     Dates: start: 20130528
  14. MECOBALAMIN [Concomitant]
     Active Substance: METHYLCOBALAMIN
     Dates: start: 20111025
  15. TS-1 [Suspect]
     Active Substance: GIMERACIL\OTERACIL POTASSIUM\TEGAFUR
     Indication: GASTRIC CANCER
     Route: 048
     Dates: start: 20101214
  16. AMLODIPINE [Concomitant]
     Active Substance: AMLODIPINE BESYLATE
     Dates: start: 20120605
  17. GOSHAJINKIGAN [Concomitant]
     Active Substance: HERBALS
     Dosage: GRANULE
     Dates: start: 20111025
  18. PRAVASTATIN [Concomitant]
     Active Substance: PRAVASTATIN\PRAVASTATIN SODIUM
     Dates: start: 20130326
  19. DIQUAFOSOL TETRASODIUM [Concomitant]
     Active Substance: DIQUAFOSOL TETRASODIUM
     Dates: start: 20140626
  20. DEXALTIN [Concomitant]
     Active Substance: DEXAMETHASONE
     Dates: start: 20110712

REACTIONS (1)
  - Cataract [Recovering/Resolving]

NARRATIVE: CASE EVENT DATE: 20140729
